FAERS Safety Report 5330973-4 (Version None)
Quarter: 2007Q2

REPORT INFORMATION
  Report Type: 
  Country: None (occurrence: None)
  Receive Date: 20070522
  Receipt Date: 20070509
  Transmission Date: 20071010
  Serious: Yes (Hospitalization, Disabling)
  Sender: FDA-Public Use
  Company Number: US-AMGEN-STX222461

PATIENT
  Sex: Female

DRUGS (1)
  1. ENBREL [Suspect]
     Indication: PSORIASIS
     Route: 058
     Dates: start: 20041029, end: 20060501

REACTIONS (3)
  - FALL [None]
  - FOOT FRACTURE [None]
  - GENERAL PHYSICAL HEALTH DETERIORATION [None]
